FAERS Safety Report 9380281 (Version 1)
Quarter: 2013Q3

REPORT INFORMATION
  Report Type: Spontaneous
  Country: DK (occurrence: DK)
  Receive Date: 20130702
  Receipt Date: 20130702
  Transmission Date: 20140515
  Serious: Yes (Other)
  Sender: FDA-Public Use
  Company Number: DK-ASTRAZENECA-2013SE48222

PATIENT
  Sex: Male

DRUGS (2)
  1. CRESTOR [Suspect]
     Indication: THROMBOSIS PROPHYLAXIS
     Route: 048
  2. PERSANTIN [Concomitant]

REACTIONS (2)
  - Cerebral haemorrhage [Unknown]
  - Hypertension [Unknown]
